FAERS Safety Report 8160519-7 (Version None)
Quarter: 2012Q1

REPORT INFORMATION
  Report Type: 
  Country: None (occurrence: None)
  Receive Date: 20120223
  Receipt Date: 20120214
  Transmission Date: 20120608
  Serious: Yes (Other)
  Sender: FDA-Public Use
  Company Number: CH-ASTRAZENECA-2012SE10853

PATIENT
  Age: 65 Year
  Sex: Female

DRUGS (6)
  1. ASPIRIN [Concomitant]
  2. EXFORGE HCT [Concomitant]
  3. OMEPRAZOLE [Suspect]
     Route: 048
  4. CELECTOL [Concomitant]
  5. CRESTOR [Suspect]
     Indication: DYSLIPIDAEMIA
     Route: 048
     Dates: end: 20120103
  6. TRAMADOL HYDROCHLORIDE [Concomitant]

REACTIONS (2)
  - OSTEONECROSIS [None]
  - MYALGIA [None]
